FAERS Safety Report 25205873 (Version 1)
Quarter: 2025Q2

REPORT INFORMATION
  Report Type: Spontaneous
  Country: US (occurrence: US)
  Receive Date: 20250417
  Receipt Date: 20250417
  Transmission Date: 20250716
  Serious: Yes (Congenital Anomaly, Other)
  Sender: UCB
  Company Number: US-UCBSA-2025021181

PATIENT

DRUGS (2)
  1. CIMZIA [Suspect]
     Active Substance: CERTOLIZUMAB PEGOL
     Indication: Rheumatoid arthritis
     Dosage: 200 MILLIGRAM, EV 2 WEEKS(QOW)
     Route: 064
  2. MINERALS\VITAMINS [Concomitant]
     Active Substance: MINERALS\VITAMINS
     Indication: Product used for unknown indication
     Route: 064

REACTIONS (2)
  - Trisomy 13 [Not Recovered/Not Resolved]
  - Maternal exposure during pregnancy [Unknown]
